FAERS Safety Report 6105533-8 (Version None)
Quarter: 2009Q1

REPORT INFORMATION
  Report Type: 
  Country: None (occurrence: None)
  Receive Date: 20090306
  Receipt Date: 20090225
  Transmission Date: 20090719
  Serious: Yes (Hospitalization)
  Sender: FDA-Public Use
  Company Number: B0561584A

PATIENT
  Age: 25 Year
  Sex: Female

DRUGS (1)
  1. CLAVULIN [Suspect]
     Dosage: 2G PER DAY
     Route: 048
     Dates: start: 20090203, end: 20090209

REACTIONS (2)
  - BRONCHOPNEUMONIA [None]
  - TREATMENT FAILURE [None]
